FAERS Safety Report 17532731 (Version 1)
Quarter: 2020Q1

REPORT INFORMATION
  Report Type: Spontaneous
  Country: US (occurrence: US)
  Receive Date: 20200312
  Receipt Date: 20200312
  Transmission Date: 20200409
  Serious: No
  Sender: FDA-Public Use
  Company Number: US-PFIZER INC-2020107214

PATIENT
  Age: 64 Year
  Sex: Female
  Weight: 68.4 kg

DRUGS (1)
  1. XELJANZ [Suspect]
     Active Substance: TOFACITINIB CITRATE
     Indication: RHEUMATOID ARTHRITIS
     Dosage: 5 MG, 2X/DAY, [ONE IN THE MORNING ONE IN NIGHT]
     Route: 048

REACTIONS (2)
  - Body height decreased [Unknown]
  - Hypoacusis [Unknown]
